FAERS Safety Report 7256053-9 (Version None)
Quarter: 2011Q1

REPORT INFORMATION
  Report Type: 
  Country: None (occurrence: None)
  Receive Date: 20110129
  Receipt Date: 20100510
  Transmission Date: 20110831
  Serious: No
  Sender: FDA-Public Use
  Company Number: US-ABBOTT-10P-163-0643625-00

PATIENT
  Age: 34 Year
  Sex: Female

DRUGS (2)
  1. VICODIN [Concomitant]
     Indication: HEADACHE
  2. HUMIRA [Suspect]
     Indication: CROHN'S DISEASE
     Dates: start: 20080101

REACTIONS (8)
  - RHINORRHOEA [None]
  - ERYTHEMA [None]
  - FATIGUE [None]
  - JOINT SWELLING [None]
  - OROPHARYNGEAL PAIN [None]
  - EXCORIATION [None]
  - EYE SWELLING [None]
  - CHILLS [None]
